FAERS Safety Report 12611377 (Version 1)
Quarter: 2016Q3

REPORT INFORMATION
  Report Type: Spontaneous
  Country: US (occurrence: US)
  Receive Date: 20160801
  Receipt Date: 20160801
  Transmission Date: 20161109
  Serious: Yes (Hospitalization)
  Sender: FDA-Public Use
  Company Number: US-FRESENIUS KABI-FK201604903

PATIENT
  Age: 79 Year
  Sex: Female
  Weight: 78.47 kg

DRUGS (4)
  1. DEXAMETHASONE SODIUM PHOSPHATE INJECTION, USP [Suspect]
     Active Substance: DEXAMETHASONE SODIUM PHOSPHATE
     Indication: OSTEOARTHRITIS
     Route: 014
     Dates: start: 20160715
  2. BUPIVACAINE HOSPIRA [Suspect]
     Active Substance: BUPIVACAINE
     Indication: OSTEOARTHRITIS
     Route: 014
     Dates: start: 20160715
  3. LIDOCAINE HOSPIRA [Suspect]
     Active Substance: LIDOCAINE
     Indication: OSTEOARTHRITIS
     Route: 014
     Dates: start: 20160715
  4. DEPO-MEDROL [Suspect]
     Active Substance: METHYLPREDNISOLONE ACETATE
     Indication: OSTEOARTHRITIS
     Route: 014
     Dates: start: 20160715

REACTIONS (1)
  - Arthritis infective [Not Recovered/Not Resolved]

NARRATIVE: CASE EVENT DATE: 20160723
